FAERS Safety Report 8317846-X (Version None)
Quarter: 2012Q2

REPORT INFORMATION
  Report Type: 
  Country: None (occurrence: None)
  Receive Date: 20120427
  Receipt Date: 20120419
  Transmission Date: 20120825
  Serious: Yes (Hospitalization, Other)
  Sender: FDA-Public Use
  Company Number: US-BAYER-2012-009540

PATIENT
  Age: 45 Year
  Sex: Female
  Weight: 99.773 kg

DRUGS (4)
  1. SYNTHROID [Concomitant]
     Indication: HYPOTHYROIDISM
     Dosage: UNK
     Dates: start: 20030101
  2. YASMIN [Suspect]
     Dosage: UNK
     Dates: start: 20040101, end: 20090101
  3. YAZ [Suspect]
     Dosage: UNK
     Dates: start: 20040101, end: 20090101
  4. ALBUTEROL [Concomitant]
     Indication: ASTHMA
     Dosage: UNK
     Dates: start: 20040101

REACTIONS (4)
  - EMOTIONAL DISTRESS [None]
  - CHOLECYSTITIS CHRONIC [None]
  - HYPERTENSION [None]
  - TACHYCARDIA [None]
